FAERS Safety Report 8294155 (Version 4)
Quarter: 2014Q1

REPORT INFORMATION
  Report Type: Spontaneous
  Country: US (occurrence: US)
  Receive Date: 20111216
  Receipt Date: 20140116
  Transmission Date: 20141002
  Serious: Yes (Hospitalization, Other)
  Sender: FDA-Public Use
  Company Number: US-JNJFOC-20090301655

PATIENT
  Age: 52 Year
  Sex: Male
  Weight: 81.65 kg

DRUGS (5)
  1. REMICADE [Suspect]
     Indication: CROHN^S DISEASE
     Dates: start: 200709
  2. REMICADE [Suspect]
     Indication: CROHN^S DISEASE
     Dates: start: 200706
  3. REMICADE [Suspect]
     Indication: CROHN^S DISEASE
     Dates: start: 200705
  4. REMICADE [Suspect]
     Indication: CROHN^S DISEASE
     Dates: start: 200704
  5. PREDNISONE [Concomitant]

REACTIONS (7)
  - Eosinophilic pneumonia acute [Recovered/Resolved with Sequelae]
  - Pneumonia pseudomonal [Recovered/Resolved with Sequelae]
  - Enterococcal infection [Unknown]
  - Interstitial lung disease [Not Recovered/Not Resolved]
  - Myopathy [Not Recovered/Not Resolved]
  - Mononeuropathy [Not Recovered/Not Resolved]
  - Pulmonary fibrosis [Unknown]
